FAERS Safety Report 10553942 (Version 1)
Quarter: 2014Q4

REPORT INFORMATION
  Report Type: Spontaneous
  Country: US (occurrence: US)
  Receive Date: 20141030
  Receipt Date: 20141030
  Transmission Date: 20150529
  Serious: Yes (Other)
  Sender: FDA-Public Use
  Company Number: US-JNJCP-30000245992

PATIENT
  Sex: Female

DRUGS (2)
  1. JOHNSONS BABY PRODUCTS [Suspect]
     Active Substance: UNSPECIFIED INGREDIENT
     Indication: PRODUCT USED FOR UNKNOWN INDICATION
     Route: 061
  2. SHOWER TO SHOWER [Suspect]
     Active Substance: TALC
     Indication: PRODUCT USED FOR UNKNOWN INDICATION
     Route: 061

REACTIONS (1)
  - Ovarian cancer [Unknown]
